FAERS Safety Report 10930906 (Version 2)
Quarter: 2015Q3

REPORT INFORMATION
  Report Type: Report from Study
  Country: US (occurrence: US)
  Receive Date: 20150319
  Receipt Date: 20150812
  Transmission Date: 20151125
  Serious: Yes (Death, Hospitalization, Other)
  Sender: FDA-Public Use
  Company Number: US-GILEAD-2015-0142474

PATIENT
  Age: 63 Year
  Sex: Male

DRUGS (6)
  1. AMBRISENTAN [Suspect]
     Active Substance: AMBRISENTAN
     Indication: PORTOPULMONARY HYPERTENSION
     Dosage: 10 MG, QD
     Route: 048
     Dates: start: 20120703, end: 20150303
  2. SILDENAFIL. [Concomitant]
     Active Substance: SILDENAFIL
  3. RISPERIDONE. [Concomitant]
     Active Substance: RISPERIDONE
  4. OLANZAPINE. [Concomitant]
     Active Substance: OLANZAPINE
  5. LACTULOSE. [Concomitant]
     Active Substance: LACTULOSE
  6. PANTOPRAZOLE [Concomitant]
     Active Substance: PANTOPRAZOLE SODIUM

REACTIONS (2)
  - Pneumonia [Fatal]
  - Hepatic encephalopathy [Unknown]
